FAERS Safety Report 16018258 (Version 1)
Quarter: 2019Q1

REPORT INFORMATION
  Report Type: Spontaneous
  Country: US (occurrence: US)
  Receive Date: 20190226
  Receipt Date: 20190226
  Transmission Date: 20190418
  Serious: Yes (Other)
  Sender: FDA-Public Use
  Company Number: None

PATIENT
  Age: 20 Year
  Sex: Female
  Weight: 90 kg

DRUGS (2)
  1. TITANIUM DIOXIDE. [Suspect]
     Active Substance: TITANIUM DIOXIDE
     Indication: PROPHYLAXIS AGAINST SOLAR RADIATION
     Dates: start: 20030701
  2. TYLENOL [Concomitant]
     Active Substance: ACETAMINOPHEN

REACTIONS (7)
  - Dry mouth [None]
  - Pharyngeal oedema [None]
  - Rash erythematous [None]
  - Dyspepsia [None]
  - Choking sensation [None]
  - Pruritus [None]
  - Lip erythema [None]

NARRATIVE: CASE EVENT DATE: 20190226
